FAERS Safety Report 25788493 (Version 1)
Quarter: 2025Q3

REPORT INFORMATION
  Report Type: Spontaneous
  Country: KR (occurrence: KR)
  Receive Date: 20250910
  Receipt Date: 20250910
  Transmission Date: 20251020
  Serious: Yes (Other)
  Sender: MERCK SHARP & DOHME LLC
  Company Number: KR-009507513-2325361

PATIENT
  Age: 72 Year
  Sex: Male

DRUGS (1)
  1. PEMBROLIZUMAB [Suspect]
     Active Substance: PEMBROLIZUMAB
     Dosage: 200 MG, EVERY 1 DAY, FORMULATION: VIAL
     Route: 042
     Dates: start: 20240628, end: 20240628

REACTIONS (1)
  - Leukopenia [Recovering/Resolving]

NARRATIVE: CASE EVENT DATE: 20240628
